FAERS Safety Report 10595172 (Version 1)
Quarter: 2014Q4

REPORT INFORMATION
  Report Type: Spontaneous
  Country: ES (occurrence: None)
  Receive Date: 20141118
  Receipt Date: 20141118
  Transmission Date: 20150529
  Serious: Yes (Other)
  Sender: FDA-Public Use
  Company Number: 201411043

PATIENT

DRUGS (1)
  1. XIAPEX (CLOSTRIDIAL COLLAGENASE) [Suspect]
     Active Substance: COLLAGENASE CLOSTRIDIUM HISTOLYTICUM
     Indication: DUPUYTREN^S CONTRACTURE

REACTIONS (7)
  - Injection site haemorrhage [None]
  - Contusion [None]
  - Injection site swelling [None]
  - Laceration [None]
  - Injection site pain [None]
  - Dysaesthesia [None]
  - Paraesthesia [None]
